FAERS Safety Report 23344129 (Version 1)
Quarter: 2023Q4

REPORT INFORMATION
  Report Type: Report from Study
  Country: US (occurrence: US)
  Receive Date: 20231227
  Receipt Date: 20231227
  Transmission Date: 20240109
  Serious: Yes (Hospitalization)
  Sender: FDA-Public Use
  Company Number: US-ABBVIE-5503757

PATIENT
  Sex: Male

DRUGS (2)
  1. DUOPA [Suspect]
     Active Substance: CARBIDOPA\LEVODOPA
     Indication: Parkinson^s disease
     Dosage: ADMINISTER CONTENTS OF 2 CASSETTE VIA PEG-J CONTINOUSLY EACH DAY. MORNING DOSE: 0 ML, CONTINUOUS ...
     Route: 050
     Dates: start: 202308
  2. DUOPA [Suspect]
     Active Substance: CARBIDOPA\LEVODOPA

REACTIONS (2)
  - Psychotic disorder [Unknown]
  - Delusion [Unknown]

NARRATIVE: CASE EVENT DATE: 20230101
